FAERS Safety Report 16145552 (Version 2)
Quarter: 2019Q3

REPORT INFORMATION
  Report Type: Spontaneous
  Country: JP (occurrence: JP)
  Receive Date: 20190402
  Receipt Date: 20190814
  Transmission Date: 20191004
  Serious: Yes (Death)
  Sender: FDA-Public Use
  Company Number: JP-ACTELION-A-CH2019-188209

PATIENT
  Age: 68 Year
  Sex: Male

DRUGS (2)
  1. PREDONINE [Concomitant]
     Active Substance: PREDNISOLONE
     Indication: MIXED CONNECTIVE TISSUE DISEASE
     Dosage: 50 MG, QD
  2. OPSUMIT [Suspect]
     Active Substance: MACITENTAN
     Indication: PULMONARY HYPERTENSION
     Dosage: 10 MG, QD
     Route: 048
     Dates: start: 20190216, end: 20190313

REACTIONS (15)
  - Pneumonia [Fatal]
  - Haemoptysis [Fatal]
  - Cardiomegaly [Fatal]
  - Pyrexia [Fatal]
  - Carbon dioxide increased [Fatal]
  - Acute respiratory distress syndrome [Fatal]
  - Concomitant disease aggravated [Fatal]
  - C-reactive protein increased [Fatal]
  - Acidosis [Fatal]
  - Infection [Fatal]
  - Oxygen saturation decreased [Fatal]
  - Blood lactate dehydrogenase increased [Fatal]
  - Respiratory disorder [Fatal]
  - Interstitial lung disease [Fatal]
  - White blood cell count increased [Fatal]

NARRATIVE: CASE EVENT DATE: 20190313
